FAERS Safety Report 8612241-8 (Version None)
Quarter: 2012Q3

REPORT INFORMATION
  Report Type: 
  Country: None (occurrence: None)
  Receive Date: 20120822
  Receipt Date: 20120814
  Transmission Date: 20120928
  Serious: Yes (Hospitalization)
  Sender: FDA-Public Use
  Company Number: US-BAYER-2012-052359

PATIENT
  Age: 16 Year
  Sex: Female
  Weight: 65.76 kg

DRUGS (5)
  1. DROSPIRENONE AND ETHINYL ESTRADIOL [Suspect]
     Indication: ACNE
     Dosage: 3 MG, UNK
     Dates: start: 20101026, end: 20110527
  2. TRAMADOL HYDROCHLORIDE [Concomitant]
     Indication: PROCEDURAL PAIN
     Dosage: 50 MG, UNK
     Dates: start: 20100923, end: 20111130
  3. DORYX [Concomitant]
     Indication: ANTIBIOTIC THERAPY
     Dosage: 150 MG, UNK
     Dates: start: 20100901, end: 20110407
  4. YAZ [Suspect]
     Indication: ACNE
     Dosage: UNK
     Dates: start: 20110117, end: 20110317
  5. DOXYCYCLINE HCL [Concomitant]
     Indication: ACNE
     Dosage: 100 MG, UNK
     Dates: start: 20100924

REACTIONS (4)
  - INJURY [None]
  - DEEP VEIN THROMBOSIS [None]
  - PAIN [None]
  - EMOTIONAL DISTRESS [None]
